FAERS Safety Report 7301801-2 (Version None)
Quarter: 2011Q1

REPORT INFORMATION
  Report Type: 
  Country: None (occurrence: None)
  Receive Date: 20110218
  Receipt Date: 20110214
  Transmission Date: 20110831
  Serious: Yes (Life-Threatening, Hospitalization)
  Sender: FDA-Public Use
  Company Number: B0699602A

PATIENT
  Sex: Male

DRUGS (39)
  1. KIDROLASE [Suspect]
     Dosage: 11000IU PER DAY
     Route: 042
     Dates: start: 20100828, end: 20100906
  2. CORTANCYL [Suspect]
     Route: 048
     Dates: start: 20100802, end: 20100822
  3. ENDOXAN [Suspect]
     Route: 042
     Dates: start: 20100809, end: 20100826
  4. CYTARABINE [Suspect]
     Dosage: 40MG PER DAY
     Route: 037
     Dates: start: 20100809, end: 20100826
  5. SPASFON [Concomitant]
     Route: 042
     Dates: start: 20100804, end: 20101001
  6. LANTUS [Concomitant]
     Route: 058
     Dates: end: 20100908
  7. CERUBIDINE [Suspect]
     Route: 042
     Dates: start: 20100809, end: 20100824
  8. XANAX [Concomitant]
     Dosage: 1UNIT PER DAY
     Route: 048
     Dates: start: 20100814, end: 20100828
  9. AZACTAM [Concomitant]
     Dosage: 1G THREE TIMES PER DAY
     Route: 042
     Dates: start: 20100813, end: 20100821
  10. DEPO-MEDROL [Suspect]
     Dosage: 40MG PER DAY
     Route: 037
     Dates: start: 20100809, end: 20100826
  11. EMEND [Suspect]
     Route: 048
     Dates: start: 20100809, end: 20100820
  12. VANCOMYCINE [Suspect]
     Route: 042
     Dates: start: 20100804, end: 20100910
  13. MOPRAL [Suspect]
     Dosage: 20MG PER DAY
     Route: 042
     Dates: start: 20100803, end: 20100910
  14. RASBURICASE [Concomitant]
     Dosage: 13.5MG SEE DOSAGE TEXT
     Route: 042
     Dates: start: 20100802, end: 20100806
  15. METHOTREXATE [Suspect]
     Dosage: 15MG PER DAY
     Route: 037
     Dates: start: 20100809, end: 20100826
  16. HUMALOG [Concomitant]
     Route: 058
     Dates: end: 20100823
  17. LEVEMIR [Concomitant]
     Route: 058
     Dates: start: 20101001, end: 20101110
  18. SERESTA [Concomitant]
     Dosage: 10MG FOUR TIMES PER DAY
     Route: 048
     Dates: end: 20100911
  19. CONTRAMAL [Concomitant]
     Dosage: 100MG VARIABLE DOSE
     Route: 042
     Dates: start: 20100801, end: 20101024
  20. ZELITREX [Suspect]
     Dosage: 500MG TWICE PER DAY
     Route: 048
     Dates: start: 20100813, end: 20100818
  21. AMBISOME [Suspect]
     Dosage: 1UNIT ALTERNATE DAYS
     Route: 042
     Dates: start: 20100813, end: 20100914
  22. TRANXENE [Concomitant]
     Route: 048
     Dates: start: 20100804, end: 20100829
  23. ATARAX [Concomitant]
     Dosage: 50MG PER DAY
     Route: 042
     Dates: start: 20100805, end: 20100805
  24. ZOVIRAX [Suspect]
     Dosage: 500MG TWICE PER DAY
     Route: 042
     Dates: start: 20100818, end: 20100908
  25. CIFLOX [Concomitant]
     Dosage: 400MG TWICE PER DAY
     Route: 042
     Dates: start: 20100822, end: 20100823
  26. ZOPHREN [Concomitant]
     Dosage: 16MG SEE DOSAGE TEXT
     Route: 042
     Dates: start: 20100809, end: 20100826
  27. PRIMPERAN TAB [Concomitant]
     Route: 042
     Dates: start: 20100827, end: 20100921
  28. ACTRAPID [Concomitant]
     Dosage: 80IU PER DAY
     Route: 042
     Dates: start: 20100908, end: 20100930
  29. ACUPAN [Concomitant]
     Route: 042
     Dates: start: 20100804
  30. SCOPOLAMINE [Concomitant]
     Dosage: 1PAT ALTERNATE DAYS
     Route: 062
     Dates: start: 20100901, end: 20100910
  31. LASIX [Concomitant]
     Dosage: 2MG TWICE PER DAY
     Route: 042
     Dates: start: 20100909, end: 20100910
  32. STILNOX [Concomitant]
     Dosage: 10MG PER DAY
     Route: 048
     Dates: end: 20100910
  33. PENTACARINAT [Concomitant]
     Route: 055
  34. TIENAM [Concomitant]
     Route: 042
     Dates: start: 20100822, end: 20100915
  35. VINCRISTINE [Suspect]
     Dosage: 2MG CYCLIC
     Route: 042
     Dates: start: 20100809, end: 20100830
  36. GAVISCON [Concomitant]
     Route: 048
     Dates: start: 20100814
  37. OXYCODONE HCL [Concomitant]
     Dates: start: 20100821, end: 20100908
  38. GRANOCYTE [Concomitant]
     Dosage: 1INJ PER DAY
     Route: 058
     Dates: start: 20100826, end: 20100919
  39. HEPARIN [Concomitant]
     Dosage: 6000IU PER DAY
     Route: 042
     Dates: start: 20100828, end: 20100908

REACTIONS (3)
  - LEUKOPENIA [None]
  - ANAEMIA [None]
  - THROMBOCYTOPENIA [None]
